FAERS Safety Report 12438599 (Version 4)
Quarter: 2016Q4

REPORT INFORMATION
  Report Type: Spontaneous
  Country: JP (occurrence: JP)
  Receive Date: 20160606
  Receipt Date: 20161031
  Transmission Date: 20170207
  Serious: Yes (Hospitalization, Other)
  Sender: FDA-Public Use
  Company Number: JP-009507513-1606JPN002107

PATIENT
  Age: 51 Year
  Sex: Male

DRUGS (7)
  1. ZOLPIDEM TARTRATE. [Concomitant]
     Active Substance: ZOLPIDEM TARTRATE
     Indication: DEPRESSION
     Dosage: 10 MG, QD
     Route: 048
     Dates: end: 20130109
  2. NIMETAZEPAM [Concomitant]
     Active Substance: NIMETAZEPAM
     Indication: DEPRESSION
     Dosage: 10 MG, QD
     Route: 048
     Dates: end: 20130109
  3. MIRTAZAPINE. [Suspect]
     Active Substance: MIRTAZAPINE
     Indication: DEPRESSION
     Dosage: DAILY DOSE: 45 MG (15 MG X 3 TABLETS)
     Route: 048
     Dates: end: 20130109
  4. NITRAZEPAM [Concomitant]
     Active Substance: NITRAZEPAM
     Indication: DEPRESSION
     Dosage: 20 MG, QD
     Route: 048
     Dates: end: 20130109
  5. DIAZEPAM. [Concomitant]
     Active Substance: DIAZEPAM
     Indication: DEPRESSION
     Dosage: 2 MG, QD
     Route: 048
     Dates: end: 20130109
  6. ETIZOLAM [Concomitant]
     Active Substance: ETIZOLAM
     Indication: DEPRESSION
     Dosage: 0.5 MG, QD
     Route: 048
     Dates: end: 20130109
  7. FLUNITRAZEPAM [Concomitant]
     Active Substance: FLUNITRAZEPAM
     Indication: DEPRESSION
     Dosage: 4 MG, QD
     Route: 048
     Dates: end: 20130109

REACTIONS (1)
  - Fall [Recovered/Resolved]

NARRATIVE: CASE EVENT DATE: 20130108
